FAERS Safety Report 8818731 (Version 1)
Quarter: 2012Q4

REPORT INFORMATION
  Report Type: 
  Country: US (occurrence: US)
  Receive Date: 20121001
  Receipt Date: 20121001
  Transmission Date: 20130627
  Serious: Yes (Other)
  Sender: FDA-Public Use
  Company Number: US-ROCHE-1129895

PATIENT
  Sex: Female

DRUGS (3)
  1. HERCEPTIN [Suspect]
     Indication: BREAST CANCER FEMALE
     Route: 065
     Dates: start: 2000, end: 20040506
  2. HERCEPTIN [Suspect]
     Route: 065
     Dates: start: 20030714
  3. HERCEPTIN [Suspect]
     Route: 065
     Dates: start: 20040514

REACTIONS (5)
  - Metastases to lung [Unknown]
  - Dyspnoea [Unknown]
  - Pleural effusion [Unknown]
  - Metastases to skin [Unknown]
  - Disease progression [Unknown]
